FAERS Safety Report 21682149 (Version 4)
Quarter: 2023Q1

REPORT INFORMATION
  Report Type: Spontaneous
  Country: JP (occurrence: JP)
  Receive Date: 20221205
  Receipt Date: 20230328
  Transmission Date: 20230417
  Serious: Yes (Other)
  Sender: FDA-Public Use
  Company Number: JP-FERRINGPH-2022FE06420

PATIENT

DRUGS (20)
  1. DEGARELIX [Suspect]
     Active Substance: DEGARELIX
     Indication: Prostate cancer
     Dosage: 80 MG UNK FREQUENCY
     Route: 058
     Dates: start: 20210215, end: 20220521
  2. DEGARELIX [Suspect]
     Active Substance: DEGARELIX
     Dosage: 240 MG, UNK FREQUENCY
     Route: 058
     Dates: start: 20210118, end: 20210118
  3. ROXADUSTAT [Suspect]
     Active Substance: ROXADUSTAT
     Indication: Nephrogenic anaemia
     Dosage: 50 MG, ONCE WEEKLY (ONCE DAILY AFTER BREAKFAST)
     Route: 048
     Dates: start: 20220409
  4. ROXADUSTAT [Suspect]
     Active Substance: ROXADUSTAT
     Dosage: 50 MG TWICE WEEKLY (ONCE DAILY, AFTER BREAKFAST)
     Route: 048
     Dates: start: 20210720
  5. ROXADUSTAT [Suspect]
     Active Substance: ROXADUSTAT
     Dosage: 50 MG THRICE WEEKLY (ONCE DAILY, AFTER BREAKFAST)
     Route: 048
     Dates: start: 20210510, end: 20210720
  6. VESICARE [Suspect]
     Active Substance: SOLIFENACIN SUCCINATE
     Indication: Micturition urgency
     Dosage: 5 (UNK UNITS), 1 TIME DAILY
     Route: 048
     Dates: start: 20220104, end: 20220226
  7. CASODEX [Concomitant]
     Active Substance: BICALUTAMIDE
     Dosage: 80 MG
     Route: 065
     Dates: start: 20210104
  8. MIRABEGRON [Concomitant]
     Active Substance: MIRABEGRON
     Dosage: 50 MG
     Route: 065
     Dates: start: 20210315, end: 20220917
  9. IMIDAFENACIN [Concomitant]
     Active Substance: IMIDAFENACIN
     Dosage: 0.1 MG
     Route: 065
     Dates: start: 20210412, end: 20211228
  10. TOVIAZ [Concomitant]
     Active Substance: FESOTERODINE FUMARATE
     Dosage: PER ORAL NOS
     Route: 048
     Dates: start: 20210705, end: 20210904
  11. CARVEDILOL [Concomitant]
     Active Substance: CARVEDILOL
     Dosage: UNK
     Route: 065
  12. DABIGATRAN ETEXILATE MESYLATE [Concomitant]
     Active Substance: DABIGATRAN ETEXILATE MESYLATE
     Dosage: UNK
     Route: 065
  13. CERCINE [Concomitant]
     Active Substance: DIAZEPAM
     Dosage: UNK
     Route: 065
  14. OLOPATADINE HYDROCHLORIDE [Concomitant]
     Active Substance: OLOPATADINE HYDROCHLORIDE
     Dosage: PER ORAL NOS
     Route: 048
  15. OLMESARTAN MEDOXOMIL [Concomitant]
     Active Substance: OLMESARTAN MEDOXOMIL
     Dosage: PER ORAL NOS
     Route: 048
  16. SENNOSIDES A AND B [Concomitant]
     Active Substance: SENNOSIDES A AND B
     Dosage: PER ORAL NOS
     Route: 048
  17. AMLODIPINE BESYLATE [Concomitant]
     Active Substance: AMLODIPINE BESYLATE
     Dosage: PER ORAL NOS
     Route: 048
  18. METILDIGOXIN [Concomitant]
     Active Substance: METILDIGOXIN
     Dosage: PER ORAL NOS
     Route: 048
  19. LANSOPRAZOLE [Concomitant]
     Active Substance: LANSOPRAZOLE
     Dosage: PER ORAL NOS
     Route: 048
  20. GLYCOSAMINOGLYCANS [Concomitant]
     Active Substance: GLYCOSAMINOGLYCANS
     Dosage: 50 G
     Route: 065

REACTIONS (9)
  - Urinary retention [Recovered/Resolved]
  - Renal impairment [Recovered/Resolved]
  - Nephrogenic anaemia [Recovered/Resolved]
  - Injection site induration [Recovered/Resolved]
  - Hypogonadism [Unknown]
  - Dry mouth [Unknown]
  - Thirst [Recovered/Resolved]
  - Insomnia [Unknown]
  - Hypertonic bladder [Not Recovered/Not Resolved]

NARRATIVE: CASE EVENT DATE: 20210315
